FAERS Safety Report 23979432 (Version 1)
Quarter: 2024Q2

REPORT INFORMATION
  Report Type: Report from Study
  Country: US (occurrence: US)
  Receive Date: 20240615
  Receipt Date: 20240615
  Transmission Date: 20240716
  Serious: Yes (Other)
  Sender: FDA-Public Use
  Company Number: US-ABBVIE-5797894

PATIENT
  Sex: Female

DRUGS (21)
  1. SKYRIZI [Suspect]
     Active Substance: RISANKIZUMAB-RZAA
     Indication: Psoriasis
     Route: 058
     Dates: start: 2019
  2. ABILIFY [Concomitant]
     Active Substance: ARIPIPRAZOLE
     Indication: Depression
     Dates: start: 2014
  3. VITAMIN E [Concomitant]
     Active Substance: .ALPHA.-TOCOPHEROL
     Indication: Prophylaxis
     Dates: start: 2018
  4. TUMS [Concomitant]
     Active Substance: CALCIUM CARBONATE
     Indication: Mineral supplementation
     Dates: start: 202212
  5. ARMOUR THYROID [Concomitant]
     Active Substance: THYROID, PORCINE
     Indication: Autoimmune thyroiditis
     Dates: start: 2016
  6. DITROPAN XL [Concomitant]
     Active Substance: OXYBUTYNIN CHLORIDE
     Indication: Hypertonic bladder
     Dates: start: 202212
  7. VITAMIN D3 [Concomitant]
     Active Substance: CHOLECALCIFEROL
     Indication: Depression
     Dates: start: 2016
  8. ALBUTEROL [Concomitant]
     Active Substance: ALBUTEROL
     Indication: Wheezing
     Dates: start: 2018
  9. WELLBUTRIN [Concomitant]
     Active Substance: BUPROPION HYDROCHLORIDE
     Indication: Depression
     Dates: start: 2014
  10. TRINTELLIX [Concomitant]
     Active Substance: VORTIOXETINE HYDROBROMIDE
     Indication: Depression
     Dates: start: 2020
  11. DEPLIN [Concomitant]
     Active Substance: LEVOMEFOLATE CALCIUM
     Indication: Depression
     Dates: start: 2014
  12. SYNTHROID [Concomitant]
     Active Substance: LEVOTHYROXINE SODIUM
     Indication: Autoimmune thyroiditis
     Dates: start: 1998
  13. GEMTESA [Concomitant]
     Active Substance: VIBEGRON
     Indication: Hypertonic bladder
     Dates: start: 2022
  14. PRILOSEC [Concomitant]
     Active Substance: OMEPRAZOLE MAGNESIUM
     Indication: Gastrooesophageal reflux disease
     Dates: start: 2016
  15. TACROLIMUS [Concomitant]
     Active Substance: TACROLIMUS
     Indication: Psoriasis
     Dates: start: 2022
  16. MAGNESIUM OXIDE [Concomitant]
     Active Substance: MAGNESIUM OXIDE
     Indication: Mineral supplementation
     Dates: start: 2022
  17. NORVASC [Concomitant]
     Active Substance: AMLODIPINE BESYLATE
     Indication: Blood pressure measurement
     Dates: start: 2015
  18. COZAAR [Concomitant]
     Active Substance: LOSARTAN POTASSIUM
     Indication: Blood pressure measurement
     Dates: start: 20240315
  19. VALIUM [Concomitant]
     Active Substance: DIAZEPAM
     Indication: Sleep disorder
     Dates: start: 202403
  20. MOMETASONE FUROATE [Concomitant]
     Active Substance: MOMETASONE FUROATE
     Indication: Psoriasis
     Dates: start: 2023
  21. EUFLEXXA [Concomitant]
     Active Substance: HYALURONATE SODIUM
     Indication: Osteoarthritis
     Dates: start: 202301

REACTIONS (12)
  - Foot fracture [Not Recovered/Not Resolved]
  - Osteoarthritis [Not Recovered/Not Resolved]
  - COVID-19 [Recovered/Resolved]
  - Off label use [Unknown]
  - Type 2 diabetes mellitus [Recovered/Resolved with Sequelae]
  - Lumbar spinal stenosis [Not Recovered/Not Resolved]
  - Bronchitis [Unknown]
  - Pain in extremity [Not Recovered/Not Resolved]
  - Psoriasis [Unknown]
  - Therapeutic response shortened [Unknown]
  - Vertigo positional [Recovered/Resolved]
  - Dizziness [Recovered/Resolved]

NARRATIVE: CASE EVENT DATE: 20190101
